FAERS Safety Report 10463773 (Version 2)
Quarter: 2014Q3

REPORT INFORMATION
  Report Type: Report from Study
  Country: US (occurrence: US)
  Receive Date: 20140919
  Receipt Date: 20140926
  Transmission Date: 20150326
  Serious: Yes (Death, Hospitalization)
  Sender: FDA-Public Use
  Company Number: PHHO2014US012417

PATIENT
  Age: 64 Year
  Sex: Male
  Weight: 59.9 kg

DRUGS (4)
  1. AFINITOR [Suspect]
     Active Substance: EVEROLIMUS
     Indication: PLEURAL MESOTHELIOMA MALIGNANT
     Dosage: 10 MG, DAILY FOR 28 DAYS
     Route: 048
     Dates: start: 20090417, end: 20090512
  2. AFINITOR [Suspect]
     Active Substance: EVEROLIMUS
     Dosage: 10 MG, DAILY FOR 28 DAYS
     Route: 048
     Dates: start: 20090515, end: 20090604
  3. METOPROLOL SANDOZ [Suspect]
     Active Substance: METOPROLOL
     Indication: HYPERTENSION
     Dosage: 12.5 MG, BID
     Route: 048
     Dates: start: 20080722
  4. HYDROCHLOROTHIAZIDE. [Suspect]
     Active Substance: HYDROCHLOROTHIAZIDE
     Indication: HYPERTENSION
     Dosage: 12.5 MG, QD
     Route: 048
     Dates: start: 20080722, end: 20090526

REACTIONS (5)
  - Anaemia [Unknown]
  - Back pain [Not Recovered/Not Resolved]
  - Dyspnoea [Recovered/Resolved]
  - Lung infection [Fatal]
  - Left ventricular dysfunction [Recovered/Resolved]

NARRATIVE: CASE EVENT DATE: 20090509
